FAERS Safety Report 18560299 (Version 1)
Quarter: 2020Q4

REPORT INFORMATION
  Report Type: Spontaneous
  Country: AU (occurrence: AU)
  Receive Date: 20201130
  Receipt Date: 20201130
  Transmission Date: 20210114
  Serious: Yes (Death, Hospitalization)
  Sender: FDA-Public Use
  Company Number: AU-SA-2020SA343237

PATIENT

DRUGS (2)
  1. INSULIN GLARGINE [Suspect]
     Active Substance: INSULIN GLARGINE
     Indication: COMPLETED SUICIDE
     Dosage: 20 EMPTY PENS OF GLARGINE AND ASPART INSULINS IN CLOSE VICINITY TO HIS BODY
  2. INSULIN ASPART [Suspect]
     Active Substance: INSULIN ASPART
     Indication: COMPLETED SUICIDE

REACTIONS (1)
  - Overdose [Fatal]
